FAERS Safety Report 9448620 (Version 1)
Quarter: 2013Q3

REPORT INFORMATION
  Report Type: Report from Study
  Country: BR (occurrence: BR)
  Receive Date: 20130808
  Receipt Date: 20130808
  Transmission Date: 20140515
  Serious: Yes (Death, Other)
  Sender: FDA-Public Use
  Company Number: PHHY2013BR085174

PATIENT
  Sex: Female
  Weight: 82 kg

DRUGS (8)
  1. ONBREZ [Suspect]
     Indication: LUNG DISORDER
     Dosage: 300 UG, 2 OR 3 TIMES DAILY
  2. ONBREZ [Suspect]
     Indication: OFF LABEL USE
  3. ENABLEX [Suspect]
     Indication: URINARY INCONTINENCE
     Dosage: 15 MG, BID
     Route: 048
  4. ADALAT [Concomitant]
     Indication: HYPERTENSION
     Dosage: 1 DF, BID
     Route: 048
  5. VYTORIN [Concomitant]
     Indication: BLOOD CHOLESTEROL INCREASED
     Dosage: 1 DF, QD
     Route: 048
  6. SIFROL [Concomitant]
     Indication: PARKINSON^S DISEASE
     Dosage: 2 DF, DAILY
     Route: 048
  7. SPIRIVA [Concomitant]
     Indication: LUNG DISORDER
     Dosage: 2 OR 3 TIMES DAILY
  8. DUOVENT [Concomitant]
     Indication: LUNG DISORDER
     Dosage: TWO OR THREE TIMES DAILY

REACTIONS (3)
  - Pneumonia [Fatal]
  - Respiratory failure [Fatal]
  - Inappropriate schedule of drug administration [Unknown]
